FAERS Safety Report 11871481 (Version 2)
Quarter: 2016Q1

REPORT INFORMATION
  Report Type: Spontaneous
  Country: US (occurrence: US)
  Receive Date: 20151228
  Receipt Date: 20160315
  Transmission Date: 20160526
  Serious: Yes (Hospitalization)
  Sender: FDA-Public Use
  Company Number: US-PFIZER INC-2015459879

PATIENT
  Age: 64 Year
  Sex: Male
  Weight: 151.95 kg

DRUGS (2)
  1. SUTENT [Suspect]
     Active Substance: SUNITINIB MALATE
     Indication: RENAL CELL CARCINOMA
     Dosage: 50 MG, CYCLIC (50MG CAPSULE, ONE CAPSULE DAILY FOR A WEEK THEN OFF FOR TWO WEEKS CYCLES)
     Dates: start: 201510, end: 20151123
  2. SUTENT [Suspect]
     Active Substance: SUNITINIB MALATE
     Dosage: 50 MG, 1X/DAY
     Dates: start: 20150223

REACTIONS (4)
  - Testicular abscess [Not Recovered/Not Resolved]
  - Rectal abscess [Not Recovered/Not Resolved]
  - Groin abscess [Not Recovered/Not Resolved]
  - Immune system disorder [Unknown]

NARRATIVE: CASE EVENT DATE: 20151026
